FAERS Safety Report 4975383-4 (Version None)
Quarter: 2006Q2

REPORT INFORMATION
  Report Type: 
  Country: None (occurrence: None)
  Receive Date: 20060418
  Receipt Date: 20051230
  Transmission Date: 20061013
  Serious: Yes (Hospitalization)
  Sender: FDA-Public Use
  Company Number: US-MERCK-0601USA00284

PATIENT
  Age: 46 Year
  Sex: Male

DRUGS (7)
  1. ZOCOR [Suspect]
     Indication: BLOOD CHOLESTEROL INCREASED
     Route: 048
     Dates: start: 20010401, end: 20040901
  2. ZOCOR [Suspect]
     Route: 048
     Dates: start: 20040101, end: 20041222
  3. PRINZIDE [Concomitant]
     Route: 048
  4. GLUCOSAMINE SULFATE [Concomitant]
     Route: 065
     Dates: end: 20041222
  5. ASCORBIC ACID [Concomitant]
     Route: 065
     Dates: end: 20041222
  6. VITAMIN E [Concomitant]
     Route: 065
     Dates: end: 20041222
  7. TAGAMET [Concomitant]
     Route: 065
     Dates: end: 20041222

REACTIONS (15)
  - ABDOMINAL PAIN UPPER [None]
  - ANGIONEUROTIC OEDEMA [None]
  - CONDYLOMA ACUMINATUM [None]
  - DEPRESSION [None]
  - DERMATOMYOSITIS [None]
  - HAEMANGIOMA [None]
  - HEADACHE [None]
  - HYPOTHYROIDISM [None]
  - INSOMNIA [None]
  - INTERVERTEBRAL DISC DEGENERATION [None]
  - LOW DENSITY LIPOPROTEIN INCREASED [None]
  - LUNG NEOPLASM [None]
  - PNEUMONIA [None]
  - RESPIRATORY ARREST [None]
  - RESPIRATORY FAILURE [None]
